FAERS Safety Report 9222385 (Version 1)
Quarter: 2013Q2

REPORT INFORMATION
  Report Type: Spontaneous
  Country: US (occurrence: US)
  Receive Date: 20130410
  Receipt Date: 20130410
  Transmission Date: 20140414
  Serious: Yes (Disabling, Other)
  Sender: FDA-Public Use
  Company Number: US-PFIZER INC-2013112470

PATIENT
  Age: 60 Year
  Sex: Male
  Weight: 158.73 kg

DRUGS (1)
  1. LYRICA [Suspect]
     Indication: PAIN
     Dosage: 225 MG, 2X/DAY
     Route: 048
     Dates: start: 2007

REACTIONS (7)
  - Musculoskeletal disorder [Unknown]
  - Arthropathy [Unknown]
  - Back disorder [Unknown]
  - Motor dysfunction [Unknown]
  - Hearing impaired [Unknown]
  - Drug dose omission [Unknown]
  - Paraesthesia [Unknown]
